FAERS Safety Report 5022718-2 (Version None)
Quarter: 2006Q2

REPORT INFORMATION
  Report Type: 
  Country: None (occurrence: None)
  Receive Date: 20060605
  Receipt Date: 20060403
  Transmission Date: 20061013
  Serious: Yes (Life-Threatening, Hospitalization)
  Sender: FDA-Public Use
  Company Number: T06-GER-02169-01

PATIENT
  Age: 60 Year
  Sex: Female

DRUGS (3)
  1. CITALOPRAM HYDROBROMIDE [Suspect]
     Dosage: 40 MG QD PO
     Route: 048
     Dates: start: 20050715, end: 20050902
  2. SAROTEN ^LUNDBECK^ (AMITRIPTYLINE HYDROCHLORIDE) [Suspect]
     Indication: SCHIZOAFFECTIVE DISORDER
     Dosage: 10 MG QD PO
     Route: 048
     Dates: start: 20050801, end: 20050902
  3. QUILONUM - SLOW RELEASE (LITHIUM CARBONATE) [Suspect]
     Dosage: 1350 MG QD PO
     Route: 048
     Dates: start: 19810101, end: 20050902

REACTIONS (5)
  - DRUG INTERACTION [None]
  - DYSPHAGIA [None]
  - HYPERTENSIVE CRISIS [None]
  - SEROTONIN SYNDROME [None]
  - STUPOR [None]
